FAERS Safety Report 9475472 (Version 2)
Quarter: 2013Q3

REPORT INFORMATION
  Report Type: Spontaneous
  Country: US (occurrence: US)
  Receive Date: 20130826
  Receipt Date: 20130903
  Transmission Date: 20140515
  Serious: Yes (Death)
  Sender: FDA-Public Use
  Company Number: US-009507513-1308USA010525

PATIENT
  Age: 60 Year
  Sex: Male

DRUGS (5)
  1. SINGULAIR [Suspect]
     Dosage: 10 MG, ONCE DAILY
     Route: 048
     Dates: start: 201212
  2. FLONASE [Concomitant]
  3. METFORMIN HYDROCHLORIDE [Concomitant]
     Route: 048
  4. LISINOPRIL [Concomitant]
  5. AMBIEN [Concomitant]

REACTIONS (1)
  - Death [Fatal]
